FAERS Safety Report 9366499 (Version 3)
Quarter: 2013Q3

REPORT INFORMATION
  Report Type: Spontaneous
  Country: DK (occurrence: DK)
  Receive Date: 20130625
  Receipt Date: 20130819
  Transmission Date: 20140515
  Serious: Yes (Other)
  Sender: FDA-Public Use
  Company Number: DK-PFIZER INC-2013173884

PATIENT
  Age: 41 Year
  Sex: Female

DRUGS (10)
  1. FLUCONAZOLE [Suspect]
     Indication: ANTIFUNGAL PROPHYLAXIS
     Dosage: 100 MG, 1X/DAY
     Route: 065
  2. VINCRISTINE SULFATE [Interacting]
     Indication: EWING^S SARCOMA
     Dosage: 2 MG SINGLE DOSE, CYCLIC
     Route: 065
  3. MIRTAZAPINE [Interacting]
     Indication: PRODUCT USED FOR UNKNOWN INDICATION
     Dosage: UNK
     Route: 065
  4. ETOPOSIDE [Interacting]
     Indication: EWING^S SARCOMA
     Dosage: 900MG OVER 9 DAY
     Route: 065
  5. ETOPOSIDE [Interacting]
     Dosage: 300 MG, 3X/DAY
     Route: 065
  6. ETOPOSIDE [Interacting]
     Dosage: UNK
  7. IFOSFAMIDE [Interacting]
     Indication: EWING^S SARCOMA
     Dosage: 6G OVER 9 DAYS
     Route: 065
  8. IFOSFAMIDE [Interacting]
     Dosage: UNK
     Route: 065
  9. PREDNISOLONE [Interacting]
     Indication: EWING^S SARCOMA
     Dosage: UNK
     Route: 065
  10. DOXORUBICIN HYDROCHLORIDE [Concomitant]
     Indication: EWING^S SARCOMA
     Dosage: 40 MG FOR 3 DAYS, CYCLIC
     Route: 042

REACTIONS (4)
  - Drug interaction [Recovering/Resolving]
  - Drug level increased [Recovering/Resolving]
  - Paraesthesia [Recovering/Resolving]
  - Motor dysfunction [Recovering/Resolving]
